FAERS Safety Report 8329817-8 (Version None)
Quarter: 2012Q2

REPORT INFORMATION
  Report Type: 
  Country: None (occurrence: None)
  Receive Date: 20120502
  Receipt Date: 20091108
  Transmission Date: 20120825
  Serious: No
  Sender: FDA-Public Use
  Company Number: US-TEVA-2009014305

PATIENT
  Sex: Female
  Weight: 77.18 kg

DRUGS (4)
  1. WELLBUTRIN [Concomitant]
     Indication: DEPRESSION
     Dates: start: 20060101
  2. NUVIGIL [Suspect]
     Indication: SLEEP APNOEA SYNDROME
     Dosage: 150 MILLIGRAM;
     Route: 048
     Dates: start: 20090601
  3. EFFEXOR [Concomitant]
     Indication: DEPRESSION
     Dosage: 75 MILLIGRAM;
     Dates: start: 20060101
  4. NUVIGIL [Suspect]
     Dosage: 250 MILLIGRAM;
     Route: 048
     Dates: start: 20090601

REACTIONS (6)
  - INTENTIONAL DRUG MISUSE [None]
  - DYSARTHRIA [None]
  - AMNESIA [None]
  - DRUG INEFFECTIVE [None]
  - ANORGASMIA [None]
  - CONFUSIONAL STATE [None]
